FAERS Safety Report 19078766 (Version 1)
Quarter: 2021Q1

REPORT INFORMATION
  Report Type: Report from Study
  Country: US (occurrence: US)
  Receive Date: 20210331
  Receipt Date: 20210331
  Transmission Date: 20210420
  Serious: Yes (Other)
  Sender: FDA-Public Use
  Company Number: US-TAKEDA-US202005818

PATIENT
  Sex: Male
  Weight: 74.38 kg

DRUGS (12)
  1. CEREZYME [Suspect]
     Active Substance: IMIGLUCERASE
     Indication: GAUCHER^S DISEASE
     Dosage: 2400 INTERNATIONAL UNIT, 1X/2WKS
     Route: 042
     Dates: start: 20160331, end: 20170201
  2. XYZAL [Concomitant]
     Active Substance: LEVOCETIRIZINE DIHYDROCHLORIDE
     Indication: PRODUCT USED FOR UNKNOWN INDICATION
  3. SODIUM CHLORIDE 0.9% [Concomitant]
     Active Substance: SODIUM CHLORIDE
     Indication: PRODUCT USED FOR UNKNOWN INDICATION
  4. STERILE WATER [Concomitant]
     Active Substance: WATER
     Indication: PRODUCT USED FOR UNKNOWN INDICATION
  5. VELAGLUCERASE ALFA [Suspect]
     Active Substance: VELAGLUCERASE ALFA
     Indication: GAUCHER^S DISEASE
     Dosage: 4000 INTERNATIONAL UNIT, 1X/2WKS
     Route: 042
     Dates: start: 20180209
  6. DIPHENHYDRAMINE. [Concomitant]
     Active Substance: DIPHENHYDRAMINE
     Indication: PRODUCT USED FOR UNKNOWN INDICATION
  7. EPINEPHRINE. [Concomitant]
     Active Substance: EPINEPHRINE
  8. IBUPROFEN. [Concomitant]
     Active Substance: IBUPROFEN
  9. VELAGLUCERASE ALFA [Suspect]
     Active Substance: VELAGLUCERASE ALFA
     Dosage: 4400 INTERNATIONAL UNIT, Q2WEEKS
     Route: 042
     Dates: start: 20180209
  10. NORMAL SALINE [Concomitant]
     Active Substance: SODIUM CHLORIDE
     Indication: PRODUCT USED FOR UNKNOWN INDICATION
  11. CLINDAMYCIN AND BENZOYL PEROXIDE [Concomitant]
     Active Substance: BENZOYL PEROXIDE\CLINDAMYCIN PHOSPHATE
  12. FLUBLOK QUADRIVALENT NOS [Concomitant]
     Active Substance: INFLUENZA VIRUS VACCINE

REACTIONS (3)
  - Deafness [Unknown]
  - Ear infection [Unknown]
  - Device power source issue [Unknown]
